FAERS Safety Report 5663786-4 (Version None)
Quarter: 2008Q1

REPORT INFORMATION
  Report Type: 
  Country: None (occurrence: None)
  Receive Date: 20080311
  Receipt Date: 20080228
  Transmission Date: 20080703
  Serious: Yes (Other)
  Sender: FDA-Public Use
  Company Number: 024462

PATIENT
  Age: 24 Year
  Sex: Female

DRUGS (1)
  1. CLARAVIS [Suspect]
     Dosage: ORAL
     Route: 048
     Dates: start: 20071127, end: 20080228

REACTIONS (2)
  - DEPRESSION [None]
  - SUICIDAL IDEATION [None]
